FAERS Safety Report 4875396-7 (Version None)
Quarter: 2006Q1

REPORT INFORMATION
  Report Type: 
  Country: None (occurrence: None)
  Receive Date: 20060105
  Receipt Date: 20051223
  Transmission Date: 20060701
  Serious: Yes (Other)
  Sender: FDA-Public Use
  Company Number: 2005172688

PATIENT
  Age: 71 Year
  Sex: Female

DRUGS (3)
  1. LIPITOR [Suspect]
     Indication: BLOOD CHOLESTEROL INCREASED
     Dosage: 5 MG (10 MG, 1/2 10MG TABLET DAILY), ORAL
     Route: 048
     Dates: start: 20030101
  2. ACETAMINOPHEN [Concomitant]
  3. ASPIRIN [Concomitant]

REACTIONS (7)
  - ARTHRALGIA [None]
  - CATARACT [None]
  - DYSGEUSIA [None]
  - HYPOAESTHESIA [None]
  - MYALGIA [None]
  - RASH [None]
  - THERAPY NON-RESPONDER [None]
